FAERS Safety Report 10087134 (Version 1)
Quarter: 2014Q2

REPORT INFORMATION
  Report Type: Spontaneous
  Country: CA (occurrence: CA)
  Receive Date: 20140418
  Receipt Date: 20140418
  Transmission Date: 20141212
  Serious: Yes (Other)
  Sender: FDA-Public Use
  Company Number: CA-GE HEALTHCARE MEDICAL DIAGNOSTICS-OMPQ-PR-1404S-0381

PATIENT
  Age: 61 Year
  Sex: Male

DRUGS (2)
  1. OMNIPAQUE [Suspect]
     Indication: ORAL NEOPLASM
     Route: 042
     Dates: start: 20140402, end: 20140402
  2. OMNIPAQUE [Suspect]
     Indication: DIAGNOSTIC PROCEDURE

REACTIONS (2)
  - Urticaria [Recovered/Resolved]
  - Erythema [Recovered/Resolved]
